FAERS Safety Report 5244040-1 (Version None)
Quarter: 2007Q1

REPORT INFORMATION
  Report Type: 
  Country: None (occurrence: None)
  Receive Date: 20070215
  Receipt Date: 20070130
  Transmission Date: 20070707
  Serious: Yes (Other)
  Sender: FDA-Public Use
  Company Number: ENTC2007-0018

PATIENT
  Age: 76 Year
  Sex: Male

DRUGS (2)
  1. STALEVO 100 [Suspect]
     Indication: PARKINSONISM
     Dosage: 150 MG (50 MG, 2 IN 1 D);
  2. KLACID [Suspect]
     Indication: INFECTION
     Dosage: 500 MG (250 MG, 2 IN 1 D);

REACTIONS (6)
  - ABNORMAL BEHAVIOUR [None]
  - AGGRESSION [None]
  - DELIRIUM [None]
  - DISSOCIATIVE FUGUE [None]
  - DRUG INTERACTION [None]
  - INFECTION [None]
